FAERS Safety Report 5436735-1 (Version None)
Quarter: 2007Q3

REPORT INFORMATION
  Report Type: 
  Country: None (occurrence: None)
  Receive Date: 20070831
  Receipt Date: 20070821
  Transmission Date: 20080115
  Serious: Yes (Other)
  Sender: FDA-Public Use
  Company Number: GB-JNJFOC-20070804766

PATIENT
  Sex: Male

DRUGS (3)
  1. TOPIRAMATE [Suspect]
     Indication: EPILEPSY
     Route: 065
  2. VALPROATE SODIUM [Interacting]
     Indication: EPILEPSY
     Route: 065
  3. CLONAZEPAM [Concomitant]
     Indication: EPILEPSY
     Route: 065

REACTIONS (6)
  - AMMONIA INCREASED [None]
  - CACHEXIA [None]
  - DRUG INTERACTION [None]
  - FATIGUE [None]
  - FOOD AVERSION [None]
  - MOBILITY DECREASED [None]
